FAERS Safety Report 7980787-1 (Version None)
Quarter: 2011Q4

REPORT INFORMATION
  Report Type: 
  Country: None (occurrence: None)
  Receive Date: 20111214
  Receipt Date: 20111208
  Transmission Date: 20120403
  Serious: Yes (Other)
  Sender: FDA-Public Use
  Company Number: US-AMGEN-USASP2011055124

PATIENT
  Age: 50 Year
  Sex: Female

DRUGS (1)
  1. ENBREL [Suspect]
     Indication: RHEUMATOID ARTHRITIS
     Dosage: 50 MG, QWK
     Dates: start: 20080101

REACTIONS (8)
  - ANAL ABSCESS [None]
  - INJECTION SITE PAIN [None]
  - SEASONAL ALLERGY [None]
  - DIABETES MELLITUS [None]
  - DEPRESSION [None]
  - PROCTALGIA [None]
  - ARTHRITIS [None]
  - SINUSITIS [None]
